FAERS Safety Report 6638563-8 (Version None)
Quarter: 2010Q1

REPORT INFORMATION
  Report Type: 
  Country: None (occurrence: None)
  Receive Date: 20100316
  Receipt Date: 20100316
  Transmission Date: 20100710
  Serious: Yes (Other)
  Sender: FDA-Public Use
  Company Number: None

PATIENT
  Sex: Male
  Weight: 131.0895 kg

DRUGS (2)
  1. LANTIS SOLOSTARINSULIN 100 UNITS SANOFI-AVENTIS U.S. LLC [Suspect]
     Indication: TYPE 2 DIABETES MELLITUS
     Dates: start: 20100217, end: 20100315
  2. LANTIS SOLOSTARINSULIN 100 UNITS SANOFI-AVENTIS U.S. LLC [Suspect]

REACTIONS (2)
  - DEVICE FAILURE [None]
  - MEDICATION ERROR [None]
